FAERS Safety Report 10217387 (Version 3)
Quarter: 2014Q3

REPORT INFORMATION
  Report Type: Spontaneous
  Country: US (occurrence: US)
  Receive Date: 20140604
  Receipt Date: 20140722
  Transmission Date: 20150326
  Serious: Yes (Death, Hospitalization, Other)
  Sender: FDA-Public Use
  Company Number: US-INCYTE CORPORATION-2014IN001498

PATIENT
  Age: 76 Year
  Sex: Male
  Weight: 100.68 kg

DRUGS (16)
  1. JAKAFI [Suspect]
     Active Substance: RUXOLITINIB
     Dosage: 25 MG, BID
     Route: 048
     Dates: start: 201402, end: 20140325
  2. PREDNISONE. [Concomitant]
     Active Substance: PREDNISONE
  3. MECLIZINE [Concomitant]
     Active Substance: MECLIZINE\MECLIZINE HYDROCHLORIDE
     Indication: DIZZINESS
     Dosage: 25 MG, PRN
  4. DEXILANT [Concomitant]
     Active Substance: DEXLANSOPRAZOLE
     Dosage: 60 MG, QD
     Route: 048
  5. SIMVASTATIN. [Concomitant]
     Active Substance: SIMVASTATIN
     Dosage: 20 MG, QD
     Route: 048
  6. ERTAPENEM [Concomitant]
     Active Substance: ERTAPENEM
     Dosage: 1000 MG, QD
     Route: 042
  7. ASPIRIN. [Concomitant]
     Active Substance: ASPIRIN
  8. HYDROCHLOROTHIAZIDE. [Concomitant]
     Active Substance: HYDROCHLOROTHIAZIDE
  9. METOPROLOL [Concomitant]
     Active Substance: METOPROLOL
     Dosage: 25 MG, BID
     Route: 048
  10. CENTRUM SILVER                     /02363801/ [Concomitant]
     Active Substance: VITAMINS
  11. LISINOPRIL. [Concomitant]
     Active Substance: LISINOPRIL
  12. JAKAFI [Suspect]
     Active Substance: RUXOLITINIB
     Indication: MYELOFIBROSIS
     Dosage: 15 MG, BID
     Route: 048
     Dates: start: 20131112
  13. DIGOXIN. [Concomitant]
     Active Substance: DIGOXIN
     Dosage: 0.25 MG, QD
     Route: 048
  14. GABAPENTIN. [Concomitant]
     Active Substance: GABAPENTIN
     Dosage: 200 MG, QID
  15. HYDREA [Concomitant]
     Active Substance: HYDROXYUREA
     Dosage: 500 MG, QD
     Route: 048
  16. FLAGYL [Concomitant]
     Active Substance: METRONIDAZOLE\METRONIDAZOLE HYDROCHLORIDE
     Dosage: 500 MG
     Route: 048

REACTIONS (16)
  - Splenomegaly [Unknown]
  - Renal failure acute [Unknown]
  - Leukocytosis [Unknown]
  - Hyperhidrosis [Unknown]
  - Myelofibrosis [None]
  - Disease progression [Fatal]
  - Asthenia [Unknown]
  - Pain [Unknown]
  - Portal hypertension [Unknown]
  - Haemolytic anaemia [Unknown]
  - Pyrexia [Unknown]
  - Chills [Unknown]
  - Decreased appetite [Unknown]
  - Weight decreased [Unknown]
  - Ascites [None]
  - Peritonitis [Unknown]

NARRATIVE: CASE EVENT DATE: 20140325
